FAERS Safety Report 5320432-7 (Version None)
Quarter: 2007Q2

REPORT INFORMATION
  Report Type: 
  Country: None (occurrence: None)
  Receive Date: 20070509
  Receipt Date: 20070427
  Transmission Date: 20071010
  Serious: Yes (Hospitalization)
  Sender: FDA-Public Use
  Company Number: FR-ROCHE-495302

PATIENT
  Age: 78 Year
  Sex: Female

DRUGS (4)
  1. ROCEPHIN [Suspect]
     Route: 065
     Dates: start: 20070210, end: 20070217
  2. NETROMYCINE [Concomitant]
  3. TARGOCID [Concomitant]
  4. ZOVIRAX [Concomitant]
     Dates: start: 20070216, end: 20070217

REACTIONS (2)
  - CONVULSION [None]
  - RESPIRATORY DISTRESS [None]
